FAERS Safety Report 4516872-6 (Version None)
Quarter: 2004Q4

REPORT INFORMATION
  Report Type: 
  Country: None (occurrence: None)
  Receive Date: 20041029
  Receipt Date: 20040715
  Transmission Date: 20050328
  Serious: No
  Sender: FDA-Public Use
  Company Number: 2004-120337-NL

PATIENT
  Sex: Female

DRUGS (1)
  1. NUVARING [Suspect]
     Dosage: DF DAILY VAGINAL
     Route: 067

REACTIONS (3)
  - DEVICE FAILURE [None]
  - METRORRHAGIA [None]
  - VAGINAL CONTRACEPTIVE DEVICE EXPELLED [None]
